FAERS Safety Report 13287652 (Version 1)
Quarter: 2017Q1

REPORT INFORMATION
  Report Type: Report from Study
  Country: US (occurrence: US)
  Receive Date: 20170302
  Receipt Date: 20170302
  Transmission Date: 20170428
  Serious: Yes (Congenital Anomaly, Other)
  Sender: FDA-Public Use
  Company Number: US-MYLANLABS-2017M1013391

PATIENT

DRUGS (2)
  1. PYRIDOXINE [Suspect]
     Active Substance: PYRIDOXINE
     Route: 064
  2. ISONIAZID. [Suspect]
     Active Substance: ISONIAZID
     Route: 064

REACTIONS (2)
  - Congenital anomaly [None]
  - Foetal exposure during pregnancy [Unknown]
